FAERS Safety Report 6504967-7 (Version None)
Quarter: 2009Q4

REPORT INFORMATION
  Report Type: 
  Country: None (occurrence: None)
  Receive Date: 20091218
  Receipt Date: 20091204
  Transmission Date: 20100525
  Serious: Yes (Disabling, Other)
  Sender: FDA-Public Use
  Company Number: GB-SANOFI-AVENTIS-2009SA006958

PATIENT
  Age: 79 Year
  Sex: Female

DRUGS (9)
  1. RIFAMPICIN [Suspect]
     Route: 048
     Dates: start: 20091128, end: 20091129
  2. ALENDRONATE SODIUM [Concomitant]
  3. AMLODIPINE [Concomitant]
  4. CALCICHEW [Concomitant]
  5. FERROUS SULFATE TAB [Concomitant]
  6. LEFLUNOMIDE [Concomitant]
  7. MELOXICAM [Concomitant]
  8. OMEPRAZOLE [Concomitant]
  9. ZOPICLONE [Concomitant]

REACTIONS (3)
  - COMA [None]
  - CONVULSION [None]
  - HYPONATRAEMIA [None]
